FAERS Safety Report 23297419 (Version 1)
Quarter: 2023Q4

REPORT INFORMATION
  Report Type: Spontaneous
  Country: US (occurrence: US)
  Receive Date: 20231214
  Receipt Date: 20231214
  Transmission Date: 20240110
  Serious: Yes (Other)
  Sender: FDA-Public Use
  Company Number: US-SANDOZ-SDZ2023US067493

PATIENT
  Age: 74 Year
  Sex: Male

DRUGS (1)
  1. KETOROLAC [Suspect]
     Active Substance: KETOROLAC TROMETHAMINE
     Indication: Back pain
     Dosage: UNK
     Route: 065

REACTIONS (3)
  - Renal tubular necrosis [Unknown]
  - Leukocyturia [Unknown]
  - Eczema [Unknown]
